FAERS Safety Report 12083871 (Version 1)
Quarter: 2016Q1

REPORT INFORMATION
  Report Type: Spontaneous
  Country: IN (occurrence: IN)
  Receive Date: 20160217
  Receipt Date: 20160217
  Transmission Date: 20160526
  Serious: Yes (Other)
  Sender: FDA-Public Use
  Company Number: IN-SUN PHARMACEUTICAL INDUSTRIES LTD-2016R1-111033

PATIENT
  Age: 54 Year
  Sex: Female

DRUGS (1)
  1. CEPODEM [Suspect]
     Active Substance: CEFPODOXIME PROXETIL
     Indication: SINUSITIS
     Dosage: 1 DF, SINGLE
     Route: 048
     Dates: start: 20160202, end: 20160202

REACTIONS (6)
  - Vomiting [Recovering/Resolving]
  - Loss of consciousness [Recovering/Resolving]
  - Palpitations [Recovering/Resolving]
  - Pruritus [Recovering/Resolving]
  - Headache [Recovering/Resolving]
  - Pruritus genital [Recovering/Resolving]

NARRATIVE: CASE EVENT DATE: 201602
